FAERS Safety Report 6832814-2 (Version None)
Quarter: 2010Q3

REPORT INFORMATION
  Report Type: 
  Country: None (occurrence: None)
  Receive Date: 20100712
  Receipt Date: 20070321
  Transmission Date: 20110219
  Serious: No
  Sender: FDA-Public Use
  Company Number: US-PFIZER INC-2007023820

PATIENT
  Sex: Female
  Weight: 87.54 kg

DRUGS (5)
  1. CHANTIX [Suspect]
     Indication: SMOKING CESSATION THERAPY
     Route: 048
     Dates: start: 20070314
  2. CYMBALTA [Concomitant]
  3. RISPERDAL [Concomitant]
  4. CLONAZEPAM [Concomitant]
  5. LIPITOR [Concomitant]

REACTIONS (1)
  - CARDIAC FLUTTER [None]
